FAERS Safety Report 7683768-0 (Version None)
Quarter: 2011Q3

REPORT INFORMATION
  Report Type: 
  Country: None (occurrence: None)
  Receive Date: 20110810
  Receipt Date: 20110726
  Transmission Date: 20111222
  Serious: Yes (Hospitalization, Other)
  Sender: FDA-Public Use
  Company Number: GER/UKI/10/0011906

PATIENT
  Sex: Male

DRUGS (10)
  1. FLUCONAZOLE [Suspect]
     Indication: ORAL CANDIDIASIS
     Dosage: 50 MG. 1 IN 1 D
     Dates: start: 20071105, end: 20071113
  2. ZOCOR [Suspect]
     Indication: MYOCARDIAL ISCHAEMIA
     Dosage: 40 MG, 1 IN 1 D, ORAL
     Route: 048
     Dates: start: 20070301, end: 20071113
  3. CLOPIDOGREL [Concomitant]
  4. TRUVADA [Concomitant]
  5. GLICLAZIDE (GLICLAZIDE) [Concomitant]
  6. EFAVIRENZ [Concomitant]
  7. ATENOLOL [Concomitant]
  8. RAMIPRIL [Concomitant]
  9. TRIMETHOPRIM + SULFAMETHOXAZOLE [Suspect]
     Indication: ANTIFUNGAL PROPHYLAXIS
     Dosage: 960 MG, 3 IN 1 D
     Dates: start: 20071031
  10. METFORMIN HCL [Concomitant]

REACTIONS (11)
  - DRUG INTERACTION [None]
  - OESOPHAGITIS [None]
  - RENAL FAILURE ACUTE [None]
  - TUBERCULOSIS [None]
  - PNEUMONIA [None]
  - HYPOXIA [None]
  - DEPRESSED LEVEL OF CONSCIOUSNESS [None]
  - RHABDOMYOLYSIS [None]
  - HYPOTENSION [None]
  - CHEST PAIN [None]
  - RESPIRATORY FAILURE [None]
